FAERS Safety Report 17200730 (Version 1)
Quarter: 2019Q4

REPORT INFORMATION
  Report Type: Spontaneous
  Country: GB (occurrence: GB)
  Receive Date: 20191226
  Receipt Date: 20191226
  Transmission Date: 20200122
  Serious: Yes (Other)
  Sender: FDA-Public Use
  Company Number: GB-TEVA-2019-GB-1157044

PATIENT
  Age: 62 Year
  Sex: Male
  Weight: 112 kg

DRUGS (9)
  1. ATORVASTATIN [Concomitant]
     Active Substance: ATORVASTATIN
     Dosage: 1 DOSAGE FORMS
     Dates: start: 20190418
  2. GLYCERYL TRINITRATE [Concomitant]
     Active Substance: NITROGLYCERIN
     Dosage: ONE OR TWO PUFFS UNDER TONGUE AS NEEDED
     Dates: start: 20190418
  3. NITROFURANTOIN. [Concomitant]
     Active Substance: NITROFURANTOIN
     Dosage: 2 DOSAGE FORMS
     Dates: start: 20191112, end: 20191119
  4. ACETYLSALICYLIC ACID [Concomitant]
     Active Substance: ASPIRIN
     Dosage: 1 DOSAGE FORMS
     Dates: start: 20190418
  5. METFORMIN [Concomitant]
     Active Substance: METFORMIN HYDROCHLORIDE
     Dosage: 4  DOSAGE FORMS
     Dates: start: 20190418
  6. AMLODIPINE [Concomitant]
     Active Substance: AMLODIPINE BESYLATE
     Dosage: 1 DOSAGE FORMS
     Dates: start: 20190418
  7. PIOGLITAZONE. [Suspect]
     Active Substance: PIOGLITAZONE
     Dosage: 45 MG
     Dates: start: 20190418
  8. RAMIPRIL. [Concomitant]
     Active Substance: RAMIPRIL
     Dosage: NIGHT. 1 DOSAGE FORMS
     Dates: start: 20190418
  9. ATENOLOL. [Concomitant]
     Active Substance: ATENOLOL
     Dosage: MORNING. 1 DOSAGE FORMS
     Dates: start: 20190418

REACTIONS (2)
  - Haematuria [Unknown]
  - Bladder cancer stage 0, with cancer in situ [Unknown]

NARRATIVE: CASE EVENT DATE: 20191121
